FAERS Safety Report 7087095-4 (Version None)
Quarter: 2010Q4

REPORT INFORMATION
  Report Type: 
  Country: None (occurrence: None)
  Receive Date: 20101106
  Receipt Date: 20101027
  Transmission Date: 20110411
  Serious: No
  Sender: FDA-Public Use
  Company Number: US-WYE-H18411010

PATIENT
  Sex: Female

DRUGS (2)
  1. ADVIL PM [Suspect]
     Dosage: UNKNOWN
     Route: 048
  2. IBUPROFEN [Concomitant]

REACTIONS (5)
  - AGGRESSION [None]
  - AGITATION [None]
  - DEPRESSED MOOD [None]
  - MARITAL PROBLEM [None]
  - NERVOUSNESS [None]
